FAERS Safety Report 4458509-0 (Version None)
Quarter: 2004Q3

REPORT INFORMATION
  Report Type: 
  Country: None (occurrence: None)
  Receive Date: 20040922
  Receipt Date: 20030729
  Transmission Date: 20050211
  Serious: Yes (Hospitalization)
  Sender: FDA-Public Use
  Company Number: US-SHR-03-007383

PATIENT
  Age: 53 Year
  Sex: Female
  Weight: 96.1 kg

DRUGS (2)
  1. BETASERON [Suspect]
     Indication: MULTIPLE SCLEROSIS
     Dosage: 8 MIU, EVERY 2D, SUBCUTANEOUS
     Route: 058
     Dates: start: 19980918
  2. MEDROXYPROGESTERONE (MEDROXPROGESTERONE) [Concomitant]

REACTIONS (1)
  - HEART RATE IRREGULAR [None]
